FAERS Safety Report 7599849-6 (Version None)
Quarter: 2011Q2

REPORT INFORMATION
  Report Type: 
  Country: None (occurrence: None)
  Receive Date: 20110620
  Receipt Date: 20110519
  Transmission Date: 20111010
  Serious: Yes (Hospitalization)
  Sender: FDA-Public Use
  Company Number: UTC-007301

PATIENT
  Age: 50 Year
  Sex: Male

DRUGS (6)
  1. LETAIRIS [Concomitant]
  2. TYVASO [Suspect]
     Indication: PULMONARY HYPERTENSION
     Dosage: 216 MCG (54 MCG, 4 IN 1 D), INHALATION : 18 - 54 MICROGRAM (4 IN 1 D), INHALATION
     Route: 055
     Dates: start: 20110224
  3. TYVASO [Suspect]
     Indication: COR PULMONALE CHRONIC
     Dosage: 216 MCG (54 MCG, 4 IN 1 D), INHALATION : 18 - 54 MICROGRAM (4 IN 1 D), INHALATION
     Route: 055
     Dates: start: 20110224
  4. TYVASO [Suspect]
     Indication: PULMONARY HYPERTENSION
     Dosage: 216 MCG (54 MCG, 4 IN 1 D), INHALATION : 18 - 54 MICROGRAM (4 IN 1 D), INHALATION
     Route: 055
     Dates: start: 20110222
  5. TYVASO [Suspect]
     Indication: COR PULMONALE CHRONIC
     Dosage: 216 MCG (54 MCG, 4 IN 1 D), INHALATION : 18 - 54 MICROGRAM (4 IN 1 D), INHALATION
     Route: 055
     Dates: start: 20110222
  6. REVATIO [Concomitant]

REACTIONS (2)
  - HAEMOGLOBIN DECREASED [None]
  - DIVERTICULITIS [None]
